FAERS Safety Report 6565055-7 (Version None)
Quarter: 2010Q1

REPORT INFORMATION
  Report Type: 
  Country: None (occurrence: None)
  Receive Date: 20100201
  Receipt Date: 20100120
  Transmission Date: 20100710
  Serious: Yes (Other)
  Sender: FDA-Public Use
  Company Number: US-WYE-H13090810

PATIENT
  Sex: Female

DRUGS (4)
  1. PRISTIQ [Suspect]
     Indication: DEPRESSION
     Route: 048
     Dates: start: 20100101, end: 20100118
  2. PRISTIQ [Suspect]
     Route: 048
     Dates: start: 20100119
  3. AMBIEN [Concomitant]
     Dosage: UNKNOWN
  4. XANAX [Concomitant]
     Dosage: 5 MG

REACTIONS (8)
  - AGITATION [None]
  - BIPOLAR I DISORDER [None]
  - CONDITION AGGRAVATED [None]
  - DEPRESSED MOOD [None]
  - DEPRESSION [None]
  - FEELING ABNORMAL [None]
  - INSOMNIA [None]
  - SUICIDAL IDEATION [None]
